FAERS Safety Report 8797514 (Version 1)
Quarter: 2012Q4

REPORT INFORMATION
  Report Type: 
  Country: US (occurrence: US)
  Receive Date: 20120920
  Receipt Date: 20120920
  Transmission Date: 20130627
  Serious: No
  Sender: FDA-Public Use
  Company Number: US-PFIZER INC-2012229952

PATIENT
  Sex: Female

DRUGS (2)
  1. ADVIL [Suspect]
     Indication: PROCEDURAL PAIN
     Dosage: 2 DF, UNK
     Route: 048
     Dates: start: 201207
  2. ADVIL [Suspect]
     Dosage: 3 DF, UNK
     Route: 048
     Dates: start: 201209

REACTIONS (1)
  - Fatigue [Not Recovered/Not Resolved]
